FAERS Safety Report 8948066 (Version 2)
Quarter: 2012Q4

REPORT INFORMATION
  Report Type: 
  Country: DE (occurrence: DE)
  Receive Date: 20121204
  Receipt Date: 20121228
  Transmission Date: 20130627
  Serious: Yes (Other)
  Sender: FDA-Public Use
  Company Number: DE-BAYER-2012-126290

PATIENT
  Age: 57 Year
  Sex: Female
  Weight: 86 kg

DRUGS (3)
  1. BETAFERON [Suspect]
     Indication: SECONDARY PROGRESSIVE MULTIPLE SCLEROSIS
  2. VENLAFAXINE [Concomitant]
     Dosage: 1 DF, QD
  3. L-THYROXIN [Concomitant]
     Dosage: 100 ?g, QD

REACTIONS (5)
  - Thrombophlebitis [None]
  - Thrombophlebitis [Recovering/Resolving]
  - Erythema [Recovering/Resolving]
  - Oedema peripheral [Recovering/Resolving]
  - Limb discomfort [Recovering/Resolving]
